FAERS Safety Report 5655292-8 (Version None)
Quarter: 2008Q1

REPORT INFORMATION
  Report Type: 
  Country: None (occurrence: None)
  Receive Date: 20080307
  Receipt Date: 20080304
  Transmission Date: 20080703
  Serious: Yes (Death, Hospitalization)
  Sender: FDA-Public Use
  Company Number: D0055339A

PATIENT
  Age: 53 Year
  Sex: Female
  Weight: 50 kg

DRUGS (2)
  1. TYKERB [Suspect]
     Route: 048
     Dates: start: 20070901
  2. XELODA [Concomitant]
     Route: 065

REACTIONS (5)
  - BREAST CANCER METASTATIC [None]
  - DIARRHOEA [None]
  - HEADACHE [None]
  - METASTASES TO CENTRAL NERVOUS SYSTEM [None]
  - WEIGHT DECREASED [None]
